FAERS Safety Report 5964004-X (Version None)
Quarter: 2008Q4

REPORT INFORMATION
  Report Type: 
  Country: None (occurrence: None)
  Receive Date: 20081120
  Receipt Date: 20081105
  Transmission Date: 20090506
  Serious: Yes (Hospitalization)
  Sender: FDA-Public Use
  Company Number: 2008002762

PATIENT
  Age: 64 Year
  Sex: Female

DRUGS (3)
  1. ERLOTINIB (ERLOTINIB) (TABLET) (ERLOTINIB) [Suspect]
     Indication: NON-SMALL CELL LUNG CANCER
     Dosage: 150 MG QD ORAL
     Route: 048
     Dates: start: 20080719, end: 20081012
  2. BEVACIZUMAB (INJECTION FOR INFUSION) [Suspect]
     Indication: NON-SMALL CELL LUNG CANCER
     Dosage: 945 MG QD, INJECTION
     Dates: start: 20080719, end: 20080930
  3. CEFUROXIME [Concomitant]

REACTIONS (3)
  - DEEP VEIN THROMBOSIS [None]
  - HAEMATURIA [None]
  - URINARY TRACT INFECTION [None]
